FAERS Safety Report 12821840 (Version 1)
Quarter: 2016Q4

REPORT INFORMATION
  Report Type: Report from Study
  Country: US (occurrence: US)
  Receive Date: 20161006
  Receipt Date: 20161006
  Transmission Date: 20170207
  Serious: No
  Sender: FDA-Public Use
  Company Number: US-AMGEN-USASL2016027775

PATIENT
  Age: 83 Year
  Sex: Female

DRUGS (2)
  1. PROLIA [Suspect]
     Active Substance: DENOSUMAB
     Indication: OSTEOPOROSIS
     Dosage: UNK
     Route: 065
     Dates: start: 20150810
  2. CALCIUM [Concomitant]
     Active Substance: CALCIUM

REACTIONS (6)
  - Pain in extremity [Recovered/Resolved]
  - Feeling abnormal [Unknown]
  - Arthritis [Unknown]
  - Sciatica [Unknown]
  - Muscular weakness [Unknown]
  - Somnolence [Unknown]
